FAERS Safety Report 4359736-3 (Version None)
Quarter: 2004Q2

REPORT INFORMATION
  Report Type: 
  Country: None (occurrence: None)
  Receive Date: 20040512
  Receipt Date: 20040426
  Transmission Date: 20050107
  Serious: Yes (Hospitalization)
  Sender: FDA-Public Use
  Company Number: DSA_24312_2004

PATIENT
  Age: 68 Year
  Sex: Female

DRUGS (6)
  1. ORFIDAL [Suspect]
     Dosage: 1 MG PO
     Route: 048
     Dates: start: 20040211, end: 20040211
  2. GEMZAR [Suspect]
     Dosage: 1.2 G IV
     Route: 042
     Dates: start: 20040211
  3. NAVELBINE [Suspect]
     Dosage: 40 MG IV
     Route: 042
     Dates: start: 20040211
  4. PRIMPERAN INJ [Suspect]
     Dosage: 30 MG IV
     Route: 042
     Dates: start: 20040211, end: 20040211
  5. PRIMPERAN INJ [Suspect]
     Dosage: 90 QD PO
     Route: 048
     Dates: start: 20040211, end: 20040212
  6. SOLU MODERIN [Suspect]
     Dosage: 45 MG IV
     Route: 042
     Dates: start: 20040211

REACTIONS (1)
  - PANCREATITIS [None]
